FAERS Safety Report 5623016-6 (Version None)
Quarter: 2008Q1

REPORT INFORMATION
  Report Type: 
  Country: None (occurrence: None)
  Receive Date: 20080212
  Receipt Date: 20080205
  Transmission Date: 20080703
  Serious: Yes (Other)
  Sender: FDA-Public Use
  Company Number: US-RB-009223-08

PATIENT
  Sex: Male

DRUGS (2)
  1. SUBOXONE [Suspect]
     Route: 060
     Dates: start: 20071201, end: 20071201
  2. SUBOXONE [Suspect]
     Route: 060
     Dates: start: 20071201, end: 20071201

REACTIONS (1)
  - SUICIDAL IDEATION [None]
